FAERS Safety Report 12073361 (Version 3)
Quarter: 2016Q3

REPORT INFORMATION
  Report Type: Report from Study
  Country: US (occurrence: US)
  Receive Date: 20160212
  Receipt Date: 20160825
  Transmission Date: 20161109
  Serious: Yes (Hospitalization)
  Sender: FDA-Public Use
  Company Number: US-JNJFOC-20160208966

PATIENT
  Age: 11 Year
  Sex: Male
  Weight: 50.7 kg

DRUGS (5)
  1. PEPTO-BISMOL [Concomitant]
     Active Substance: BISMUTH SUBSALICYLATE
     Route: 065
  2. FIBERCON [Concomitant]
     Active Substance: CALCIUM POLYCARBOPHIL
     Route: 065
  3. IMODIUM [Concomitant]
     Active Substance: LOPERAMIDE HYDROCHLORIDE
     Route: 065
  4. REMICADE [Suspect]
     Active Substance: INFLIXIMAB
     Indication: INFLAMMATORY BOWEL DISEASE
     Route: 042
     Dates: start: 20141014
  5. OPIUM TINCTURE [Concomitant]
     Active Substance: MORPHINE
     Route: 065

REACTIONS (1)
  - Pouchitis [Not Recovered/Not Resolved]

NARRATIVE: CASE EVENT DATE: 20150909
